FAERS Safety Report 9655959 (Version 1)
Quarter: 2013Q4

REPORT INFORMATION
  Report Type: Spontaneous
  Country: US (occurrence: None)
  Receive Date: 20131029
  Receipt Date: 20131029
  Transmission Date: 20140711
  Serious: No
  Sender: FDA-Public Use
  Company Number: None

PATIENT
  Age: 38 Year
  Sex: Male
  Weight: 156.49 kg

DRUGS (2)
  1. ANDRODERM [Suspect]
     Indication: FATIGUE
     Dosage: 1, AT BEDTIME, APPLIED AS MEDICATED PATCH TO SKIN
     Dates: start: 20130907, end: 20131014
  2. ANDRODERM [Suspect]
     Indication: BLOOD TESTOSTERONE DECREASED
     Dosage: 1, AT BEDTIME, APPLIED AS MEDICATED PATCH TO SKIN
     Dates: start: 20130907, end: 20131014

REACTIONS (8)
  - Application site pain [None]
  - Application site erythema [None]
  - Application site pruritus [None]
  - Headache [None]
  - Dysuria [None]
  - Back pain [None]
  - Joint swelling [None]
  - Exfoliative rash [None]
